FAERS Safety Report 4528759-3 (Version None)
Quarter: 2004Q4

REPORT INFORMATION
  Report Type: 
  Country: None (occurrence: None)
  Receive Date: 20041216
  Receipt Date: 20041207
  Transmission Date: 20050328
  Serious: Yes (Disabling)
  Sender: FDA-Public Use
  Company Number: DE-ROCHE-388497

PATIENT
  Age: 34 Year
  Sex: Female
  Weight: 48 kg

DRUGS (5)
  1. PEG-INTERFERON ALFA 2A (RO 25-8310) [Suspect]
     Route: 058
     Dates: start: 20031127, end: 20041028
  2. RIBAVIRIN [Suspect]
     Dosage: DOSE REPORTED AS 2-O-3/D TWO IN THE MORNING AND THREE IN THE EVENING PER DAY.
     Route: 048
     Dates: start: 20031127, end: 20041028
  3. AMANTADINE HCL [Suspect]
     Route: 048
     Dates: start: 20031113, end: 20041028
  4. L-THYROXINE [Concomitant]
     Route: 048
  5. UNKNOWN DRUG [Concomitant]
     Dosage: ^DRUG REPORTED AS ^SODID^
     Route: 048

REACTIONS (1)
  - POLYNEUROPATHY [None]
